FAERS Safety Report 7824028-4 (Version None)
Quarter: 2011Q4

REPORT INFORMATION
  Report Type: 
  Country: None (occurrence: None)
  Receive Date: 20111018
  Receipt Date: 20111018
  Transmission Date: 20120403
  Serious: Yes (Hospitalization)
  Sender: FDA-Public Use
  Company Number: None

PATIENT
  Age: 65 Year
  Sex: Male
  Weight: 103.9 kg

DRUGS (2)
  1. GABAPENTIN [Suspect]
     Indication: PAIN
     Dosage: 800 MG TID PO
     Route: 048
     Dates: start: 20110916, end: 20110930
  2. MORPHINE [Suspect]
     Indication: PAIN
     Dosage: MG PO
     Route: 048
     Dates: start: 20110929, end: 20111001

REACTIONS (2)
  - CONFUSIONAL STATE [None]
  - ASTERIXIS [None]
